FAERS Safety Report 8307813-4 (Version None)
Quarter: 2012Q2

REPORT INFORMATION
  Report Type: 
  Country: None (occurrence: None)
  Receive Date: 20120424
  Receipt Date: 20120409
  Transmission Date: 20120825
  Serious: Yes (Death, Life-Threatening, Hospitalization, Disabling, Other)
  Sender: FDA-Public Use
  Company Number: US-MYLANLABS-2009AC000450

PATIENT
  Age: 69 Year
  Sex: Female
  Weight: 74.84 kg

DRUGS (90)
  1. CHLORDIAZEPOXIDE [Concomitant]
  2. LISINOPRIL [Concomitant]
  3. KLOR-CON [Concomitant]
  4. CARDIZEM [Concomitant]
  5. ATIVAN [Concomitant]
     Dosage: 0.5MG TO 2MG
  6. ELAVIL [Concomitant]
  7. LACTULOSE [Concomitant]
  8. LASIX [Concomitant]
  9. LORTAB [Concomitant]
  10. NOVOLIN 70/30 [Concomitant]
  11. PERCOCET [Concomitant]
  12. REGLAN [Concomitant]
     Dosage: 5 TO 10MG
  13. SKELAXIN [Concomitant]
  14. TYLENOL (CAPLET) [Concomitant]
  15. PROVENTIL [Concomitant]
  16. LEVAQUIN [Concomitant]
     Dosage: X10 DAYS
  17. PLAVIX [Concomitant]
  18. FUROSEMIDE [Concomitant]
  19. ALPRAZOLAM [Concomitant]
  20. GLUCOPHAGE [Concomitant]
  21. IMODIUM [Concomitant]
  22. MAGNESIUM OXIDE [Concomitant]
  23. LOTREL [Concomitant]
  24. PROCARDIA /00340701/ [Concomitant]
  25. NAPROXEN (ALEVE) [Concomitant]
  26. AMOXICILLIN [Concomitant]
  27. IPRATROPIUM BROMIDE [Concomitant]
  28. CELEBREX [Concomitant]
  29. DIPRIVAN [Concomitant]
  30. ENTERIC ASPIRIN [Concomitant]
  31. LIPOSYN /00540501/ [Concomitant]
  32. LOMOTIL [Concomitant]
  33. NITROGLYCERIN [Concomitant]
  34. GUAIFENESIN [Concomitant]
  35. TYLENOL W/ CODEINE [Concomitant]
  36. VICODIN [Concomitant]
  37. PREDNISONE TAB [Concomitant]
  38. PROPOXYPHENE HYDROCHLORIDE [Concomitant]
  39. RANITIDINE [Concomitant]
  40. TOPROL-XL [Concomitant]
  41. KETOPROFEN [Concomitant]
  42. AMBIEN [Concomitant]
  43. AZMACORT [Concomitant]
  44. LOPRESSOR [Concomitant]
     Route: 042
  45. TEMAZEPAM [Concomitant]
  46. AUGMENTIN '125' [Concomitant]
  47. VASOTEC [Concomitant]
  48. ATROVENT [Concomitant]
  49. NAPROXEN [Concomitant]
  50. ZANTAC [Concomitant]
  51. BENADRYL [Concomitant]
  52. COLACE [Concomitant]
  53. COMBIVENT [Concomitant]
  54. COMPAZINE [Concomitant]
  55. COUMADIN [Concomitant]
  56. DIOVAN [Concomitant]
  57. HALDOL [Concomitant]
     Dosage: 1 TO 2 MG
  58. MYLANTA [Concomitant]
  59. ORAMORPH SR [Concomitant]
  60. THORAZINE [Concomitant]
     Dosage: 10 TO 25
  61. VISTARIL [Concomitant]
  62. ZOSYN [Concomitant]
  63. LODINE [Concomitant]
  64. DIGOXIN [Suspect]
     Route: 048
     Dates: start: 20061101, end: 20080501
  65. POTASSIUM CHLORIDE [Concomitant]
  66. ZOLOFT [Concomitant]
  67. PROTONIX [Concomitant]
  68. METOPROLOL TARTRATE [Concomitant]
  69. TEMAZEPAM [Concomitant]
  70. DULCOLAX [Concomitant]
  71. PRINIVIL [Concomitant]
  72. SCOPOLAMINE [Concomitant]
  73. SENOKOT [Concomitant]
  74. ATROPINE [Concomitant]
  75. AXID /00867001/ [Concomitant]
  76. XOPENEX [Concomitant]
  77. ASPIRIN [Concomitant]
  78. HYDROCODONE W/APAP /00607101/ [Concomitant]
  79. CIPROFLOXACIN HCL [Concomitant]
  80. ALBUTEROL [Concomitant]
  81. DARVOCET [Concomitant]
  82. PRILOSEC [Concomitant]
  83. DIAZEPAM [Concomitant]
     Dosage: 5 TO 10 MG
  84. DIFLUCAN [Concomitant]
  85. FLAGYL [Concomitant]
  86. IBUPROFEN [Concomitant]
     Dosage: 400MG TO 600MG
  87. PEPCID [Concomitant]
  88. PHENERGAN HCL [Concomitant]
  89. MORPHINE SULFATE [Concomitant]
  90. VANCOMYCIN [Concomitant]

REACTIONS (107)
  - CARDIAC FAILURE CONGESTIVE [None]
  - ANGINA PECTORIS [None]
  - RESPIRATORY FAILURE [None]
  - ACUTE RESPIRATORY FAILURE [None]
  - ATELECTASIS [None]
  - LEFT VENTRICULAR HYPERTROPHY [None]
  - PLEURAL EFFUSION [None]
  - TRANSIENT ISCHAEMIC ATTACK [None]
  - BRONCHITIS [None]
  - CENTRAL VENOUS CATHETERISATION [None]
  - EXOPHTHALMOS [None]
  - HEPATIC STEATOSIS [None]
  - JUGULAR VEIN DISTENSION [None]
  - LABORATORY TEST ABNORMAL [None]
  - OBSTRUCTIVE AIRWAYS DISORDER [None]
  - PULSE PRESSURE DECREASED [None]
  - INJURY [None]
  - DYSPNOEA [None]
  - CARDIO-RESPIRATORY ARREST [None]
  - AORTIC ANEURYSM [None]
  - HAEMOPTYSIS [None]
  - SHOCK [None]
  - CARDIOMEGALY [None]
  - CONDITION AGGRAVATED [None]
  - DIABETIC VASCULAR DISORDER [None]
  - HYPERKALAEMIA [None]
  - OEDEMA PERIPHERAL [None]
  - PERIPHERAL VASCULAR DISORDER [None]
  - RESPIRATORY TRACT CONGESTION [None]
  - TREATMENT NONCOMPLIANCE [None]
  - VOMITING [None]
  - HEADACHE [None]
  - DIABETES MELLITUS [None]
  - GASTROINTESTINAL HAEMORRHAGE [None]
  - MECHANICAL VENTILATION [None]
  - MITRAL VALVE INCOMPETENCE [None]
  - PULMONARY HYPERTENSION [None]
  - RENAL FAILURE ACUTE [None]
  - COMPUTERISED TOMOGRAM ABNORMAL [None]
  - HYPOVENTILATION [None]
  - RENAL DISORDER [None]
  - DRUG DEPENDENCE [None]
  - ENDOTRACHEAL INTUBATION [None]
  - DEMENTIA [None]
  - ECHOCARDIOGRAM ABNORMAL [None]
  - HYPERHIDROSIS [None]
  - PAIN [None]
  - PAIN IN EXTREMITY [None]
  - ASTHENIA [None]
  - ECONOMIC PROBLEM [None]
  - ILL-DEFINED DISORDER [None]
  - BRADYARRHYTHMIA [None]
  - CARDIAC VALVE DISEASE [None]
  - RESPIRATORY ARREST [None]
  - ANAEMIA [None]
  - ANXIETY [None]
  - ASCITES [None]
  - DRUG ABUSE [None]
  - HEART RATE IRREGULAR [None]
  - IMPAIRED SELF-CARE [None]
  - WHEEZING [None]
  - ELECTROCARDIOGRAM ABNORMAL [None]
  - TACHYCARDIA [None]
  - CHEST PAIN [None]
  - COR PULMONALE CHRONIC [None]
  - HYPOTENSION [None]
  - PULMONARY EMBOLISM [None]
  - PULMONARY OEDEMA [None]
  - SYNCOPE [None]
  - COUGH [None]
  - DEPRESSION [None]
  - DYSPNOEA EXERTIONAL [None]
  - GASTRIC ULCER [None]
  - PALLOR [None]
  - SEDATION [None]
  - ULTRASOUND SCAN ABNORMAL [None]
  - VERTIGO [None]
  - WHEELCHAIR USER [None]
  - PNEUMONIA [None]
  - ASPIRATION PLEURAL CAVITY [None]
  - DISCOMFORT [None]
  - BRADYCARDIA [None]
  - CARDIAC MURMUR [None]
  - CHEST TUBE INSERTION [None]
  - EXERCISE TOLERANCE DECREASED [None]
  - FALL [None]
  - HYPOTHERMIA [None]
  - MOBILITY DECREASED [None]
  - NASAL CONGESTION [None]
  - OESOPHAGOSCOPY ABNORMAL [None]
  - OXYGEN SUPPLEMENTATION [None]
  - RALES [None]
  - SKIN TURGOR DECREASED [None]
  - SPUTUM CULTURE POSITIVE [None]
  - DEATH [None]
  - DECREASED ACTIVITY [None]
  - ATRIAL FIBRILLATION [None]
  - METABOLIC ACIDOSIS [None]
  - TRICUSPID VALVE INCOMPETENCE [None]
  - UNRESPONSIVE TO STIMULI [None]
  - AORTIC STENOSIS [None]
  - BREATH SOUNDS ABNORMAL [None]
  - DYSPNOEA PAROXYSMAL NOCTURNAL [None]
  - GAIT DISTURBANCE [None]
  - HYPERTENSION [None]
  - USE OF ACCESSORY RESPIRATORY MUSCLES [None]
  - URINARY TRACT INFECTION [None]
